FAERS Safety Report 16666377 (Version 1)
Quarter: 2019Q3

REPORT INFORMATION
  Report Type: Report from Study
  Country: CA (occurrence: CA)
  Receive Date: 20190805
  Receipt Date: 20190805
  Transmission Date: 20191004
  Serious: Yes (Hospitalization)
  Sender: FDA-Public Use
  Company Number: CA-OCTA-GENA02119CA

PATIENT
  Age: 9 Year
  Sex: Male

DRUGS (1)
  1. NUWIQ [Suspect]
     Active Substance: ANTIHEMOPHILIC FACTOR, HUMAN RECOMBINANT
     Indication: FACTOR VIII DEFICIENCY
     Route: 042
     Dates: start: 20190710, end: 20190710

REACTIONS (3)
  - Device related infection [Unknown]
  - Pyrexia [Unknown]
  - Catheter site pain [Unknown]

NARRATIVE: CASE EVENT DATE: 20190716
